FAERS Safety Report 8417522-9 (Version None)
Quarter: 2012Q2

REPORT INFORMATION
  Report Type: 
  Country: None (occurrence: None)
  Receive Date: 20120606
  Receipt Date: 20120529
  Transmission Date: 20120825
  Serious: Yes (Other)
  Sender: FDA-Public Use
  Company Number: US-JNJFOC-20120408695

PATIENT
  Sex: Male
  Weight: 67.13 kg

DRUGS (6)
  1. XARELTO [Suspect]
     Indication: ATRIAL FIBRILLATION
     Route: 048
     Dates: start: 20120412
  2. METOPROLOL TARTRATE [Concomitant]
     Indication: BLOOD PRESSURE
     Route: 048
  3. METOPROLOL TARTRATE [Concomitant]
     Indication: ARRHYTHMIA
     Route: 048
  4. AMIODARONE HCL [Concomitant]
     Indication: CARDIAC DISORDER
     Route: 048
     Dates: start: 20120101
  5. AVODART [Concomitant]
     Indication: PROSTATOMEGALY
     Route: 048
     Dates: start: 20020101
  6. TAURINE [Concomitant]
     Indication: CARDIAC DISORDER
     Route: 048

REACTIONS (8)
  - PARAESTHESIA [None]
  - TACHYCARDIA [None]
  - MUSCLE TIGHTNESS [None]
  - JOINT SWELLING [None]
  - BLOOD PRESSURE INCREASED [None]
  - HYPOTENSION [None]
  - DIZZINESS [None]
  - SINUS BRADYCARDIA [None]
